FAERS Safety Report 6189527-2 (Version None)
Quarter: 2009Q2

REPORT INFORMATION
  Report Type: 
  Country: None (occurrence: None)
  Receive Date: 20090512
  Receipt Date: 20090512
  Transmission Date: 20091009
  Serious: Yes (Life-Threatening)
  Sender: FDA-Public Use
  Company Number: None

PATIENT
  Age: 36 Year
  Sex: Female
  Weight: 47.6277 kg

DRUGS (7)
  1. PROVIGIL [Suspect]
     Indication: FATIGUE
     Dosage: 100 MG QD PO
     Route: 048
     Dates: start: 20050501, end: 20070214
  2. PROVIGIL [Suspect]
     Indication: MULTIPLE SCLEROSIS
     Dosage: 100 MG QD PO
     Route: 048
     Dates: start: 20050501, end: 20070214
  3. COPAXONE [Concomitant]
  4. ORTHO-NOVUM [Concomitant]
  5. CLARITIN [Concomitant]
  6. FLONASE [Concomitant]
  7. PATANOL [Concomitant]

REACTIONS (2)
  - CARDIAC FAILURE [None]
  - CARDIOMYOPATHY [None]
